FAERS Safety Report 11404753 (Version 3)
Quarter: 2015Q3

REPORT INFORMATION
  Report Type: Spontaneous
  Country: US (occurrence: US)
  Receive Date: 20150821
  Receipt Date: 20150901
  Transmission Date: 20151125
  Serious: Yes (Life-Threatening, Hospitalization, Other)
  Sender: FDA-Public Use
  Company Number: US-CELGENEUS-USA-2015072424

PATIENT
  Age: 60 Year
  Sex: Female
  Weight: 69.5 kg

DRUGS (8)
  1. GEMCITABINE [Suspect]
     Active Substance: GEMCITABINE\GEMCITABINE HYDROCHLORIDE
     Route: 065
     Dates: end: 20150701
  2. CULTURELLE LACTO GG [Concomitant]
     Indication: CANDIDA INFECTION
     Route: 048
     Dates: start: 20150708
  3. BLINDED NECUPARANIB [Suspect]
     Active Substance: NECUPARANIB
     Route: 065
     Dates: start: 20150629
  4. CEFTIN [Concomitant]
     Active Substance: CEFUROXIME AXETIL
     Indication: URINARY TRACT INFECTION
     Route: 048
     Dates: start: 20150703
  5. GEMCITABINE [Suspect]
     Active Substance: GEMCITABINE\GEMCITABINE HYDROCHLORIDE
     Indication: PANCREATIC CARCINOMA METASTATIC
     Route: 065
     Dates: start: 20150603, end: 20150618
  6. BLINDED NECUPARANIB [Suspect]
     Active Substance: NECUPARANIB
     Indication: PANCREATIC CARCINOMA METASTATIC
     Route: 065
     Dates: start: 20150603, end: 20150622
  7. ABRAXANE [Suspect]
     Active Substance: PACLITAXEL
     Indication: PANCREATIC CARCINOMA METASTATIC
     Route: 041
     Dates: start: 20150603, end: 20150618
  8. ABRAXANE [Suspect]
     Active Substance: PACLITAXEL
     Route: 041
     Dates: end: 20150701

REACTIONS (2)
  - Bacteraemia [Recovered/Resolved]
  - Pleural effusion [Recovering/Resolving]

NARRATIVE: CASE EVENT DATE: 20150621
